FAERS Safety Report 5794182-7 (Version None)
Quarter: 2008Q2

REPORT INFORMATION
  Report Type: 
  Country: None (occurrence: None)
  Receive Date: 20080625
  Receipt Date: 20080617
  Transmission Date: 20081010
  Serious: Yes (Other)
  Sender: FDA-Public Use
  Company Number: 2008015897

PATIENT
  Age: 66 Year
  Sex: Female
  Weight: 61.2 kg

DRUGS (1)
  1. ZYRTEC-D 12 HOUR [Suspect]
     Indication: HYPERSENSITIVITY
     Dosage: 1 PILL, ONE PILL ONLY (1 IN 1 D), ORAL
     Route: 048
     Dates: start: 20080315, end: 20080315

REACTIONS (2)
  - PRURITUS [None]
  - URTICARIA [None]
